FAERS Safety Report 10942927 (Version 1)
Quarter: 2015Q1

REPORT INFORMATION
  Report Type: Spontaneous
  Country: US (occurrence: None)
  Receive Date: 20150212
  Receipt Date: 20150212
  Transmission Date: 20150721
  Serious: No
  Sender: FDA-Public Use
  Company Number: TPA2011A03996

PATIENT
  Age: 52 Year
  Sex: Male

DRUGS (3)
  1. UNKNOWN STATIN (NYSTATIN) [Concomitant]
  2. BABY ASPIRIN (ACETYLSALICYLIC ACID) [Concomitant]
     Active Substance: ASPIRIN
  3. ULORIC [Suspect]
     Active Substance: FEBUXOSTAT
     Indication: GOUT
     Dosage: 80 MG, 1 IN 1 D), PER ORAL
     Route: 048

REACTIONS (1)
  - Blood creatine phosphokinase increased [None]
